FAERS Safety Report 8333139-9 (Version None)
Quarter: 2012Q1

REPORT INFORMATION
  Report Type: 
  Country: None (occurrence: None)
  Receive Date: 20120327
  Receipt Date: 20110301
  Transmission Date: 20120608
  Serious: Yes (Other)
  Sender: FDA-Public Use
  Company Number: PHHY2011US15106

PATIENT
  Age: 74 Year
  Sex: Male
  Weight: 84 kg

DRUGS (15)
  1. PRICOR [Concomitant]
  2. LUTEIN (XANTOFYL) [Concomitant]
  3. GLEEVEC [Suspect]
     Dosage: 600 MG; 400 MG, QD
     Dates: end: 20101101
  4. CALCIUM CARBONATE [Concomitant]
  5. FISH OIL (FISH OIL) [Concomitant]
  6. IBUPROFEN [Concomitant]
  7. ASPIRIN [Concomitant]
  8. SPRYCEL [Suspect]
     Dosage: 100 MG, QD
  9. HYZAAR [Concomitant]
  10. SAW PALMETTO (SERENOA REPENS) [Concomitant]
  11. GLOWMAX [Concomitant]
  12. ZETIA [Concomitant]
  13. SYNTHROID [Concomitant]
  14. MULTIVITAMINS (ASCORBIC ACID, ERGOCALCIFEROL, FOLIC ACID, NICOTINAMIDE [Concomitant]
  15. VITAMIN E + C [Concomitant]

REACTIONS (4)
  - ANAEMIA [None]
  - DISEASE RECURRENCE [None]
  - PULMONARY OEDEMA [None]
  - ASTHENIA [None]
